FAERS Safety Report 24111096 (Version 1)
Quarter: 2024Q3

REPORT INFORMATION
  Report Type: Spontaneous
  Country: DE (occurrence: DE)
  Receive Date: 20240718
  Receipt Date: 20240718
  Transmission Date: 20241017
  Serious: Yes (Other)
  Sender: GILEAD
  Company Number: DE-GILEAD-2024-0679851

PATIENT
  Sex: Male

DRUGS (1)
  1. ZYDELIG [Suspect]
     Active Substance: IDELALISIB
     Indication: Product used for unknown indication
     Route: 065

REACTIONS (2)
  - Extraskeletal ossification [Unknown]
  - Lymphatic disorder [Unknown]
